FAERS Safety Report 25366720 (Version 1)
Quarter: 2025Q2

REPORT INFORMATION
  Report Type: Spontaneous
  Country: GB (occurrence: GB)
  Receive Date: 20250528
  Receipt Date: 20250528
  Transmission Date: 20250716
  Serious: Yes (Death, Other)
  Sender: ALKEM
  Company Number: None

PATIENT
  Age: 56 Year
  Sex: Male

DRUGS (1)
  1. FINGOLIMOD [Suspect]
     Active Substance: FINGOLIMOD
     Indication: Multiple sclerosis
     Route: 065
     Dates: start: 202307

REACTIONS (1)
  - Death [Fatal]

NARRATIVE: CASE EVENT DATE: 20250329
